FAERS Safety Report 9795307 (Version 2)
Quarter: 2014Q1

REPORT INFORMATION
  Report Type: Report from Study
  Country: IT (occurrence: IT)
  Receive Date: 20140103
  Receipt Date: 20140103
  Transmission Date: 20141002
  Serious: Yes (Hospitalization)
  Sender: FDA-Public Use
  Company Number: IT-BRISTOL-MYERS SQUIBB COMPANY-19456151

PATIENT
  Age: 64 Year
  Sex: Female

DRUGS (4)
  1. PACLITAXEL [Suspect]
     Indication: OVARIAN EPITHELIAL CANCER
     Dosage: LAST DOSE PRIOR TO SAE 27/AUG/2013?INTERRUPTED ON:10SEP13
     Route: 042
     Dates: start: 20130702
  2. BLINDED: PERTUZUMAB [Suspect]
     Indication: OVARIAN EPITHELIAL CANCER
     Dosage: LOADING DOSE:(1 IN 1 TOTAL)INTERRUPTED ON 10SEP2013?LEST DOSE PRIOR TO SAE: 13/AUG/2013
     Route: 042
     Dates: start: 20130702
  3. BLINDED: PLACEBO [Suspect]
     Indication: OVARIAN EPITHELIAL CANCER
     Dosage: LAST DOSE WAS ON 13-AUG-2013
     Route: 042
     Dates: start: 20130702
  4. GABAPENTIN [Concomitant]
     Dates: start: 201201

REACTIONS (2)
  - Anaemia [Recovered/Resolved]
  - Pyrexia [Recovered/Resolved]
